FAERS Safety Report 10857028 (Version 7)
Quarter: 2016Q3

REPORT INFORMATION
  Report Type: Spontaneous
  Country: US (occurrence: US)
  Receive Date: 20150223
  Receipt Date: 20160804
  Transmission Date: 20161109
  Serious: Yes (Hospitalization, Congenital Anomaly, Other)
  Sender: FDA-Public Use
  Company Number: US-APOTEX-2014AP001153

PATIENT
  Age: 0 Day
  Sex: Female

DRUGS (1)
  1. PAXIL [Suspect]
     Active Substance: PAROXETINE HYDROCHLORIDE
     Indication: DEPRESSION
     Dosage: UNK
     Route: 064
     Dates: start: 1994, end: 1995

REACTIONS (15)
  - Patent ductus arteriosus [Unknown]
  - Congenital aortic valve incompetence [Unknown]
  - Myocardial bridging [Unknown]
  - Aortic valve incompetence [Unknown]
  - Arnold-Chiari malformation [Unknown]
  - Pulmonary valve incompetence [Unknown]
  - Foetal exposure during pregnancy [Unknown]
  - Rib deformity [Unknown]
  - Congenital aortic valve stenosis [Unknown]
  - Bicuspid aortic valve [Unknown]
  - Anxiety [Unknown]
  - Depression [Unknown]
  - Coarctation of the aorta [Unknown]
  - Aorta hypoplasia [Unknown]
  - Tricuspid valve incompetence [Unknown]

NARRATIVE: CASE EVENT DATE: 19950129
